FAERS Safety Report 9779938 (Version 1)
Quarter: 2013Q4

REPORT INFORMATION
  Report Type: Spontaneous
  Country: US (occurrence: US)
  Receive Date: 20131223
  Receipt Date: 20131223
  Transmission Date: 20140711
  Serious: Yes (Other)
  Sender: FDA-Public Use
  Company Number: US-GLAXOSMITHKLINE-A1054522A

PATIENT
  Age: 47 Year
  Sex: Female

DRUGS (1)
  1. BENLYSTA [Suspect]
     Indication: SYSTEMIC LUPUS ERYTHEMATOSUS
     Dosage: 120MG EVERY 28 DAYS
     Route: 042
     Dates: start: 20111115, end: 20130915

REACTIONS (5)
  - Systemic lupus erythematosus [Not Recovered/Not Resolved]
  - Therapy cessation [Unknown]
  - Skin lesion [Not Recovered/Not Resolved]
  - Fatigue [Unknown]
  - Inflammation [Not Recovered/Not Resolved]
